FAERS Safety Report 12579593 (Version 2)
Quarter: 2016Q3

REPORT INFORMATION
  Report Type: Spontaneous
  Country: JP (occurrence: JP)
  Receive Date: 20160721
  Receipt Date: 20160922
  Transmission Date: 20161109
  Serious: Yes (Hospitalization)
  Sender: FDA-Public Use
  Company Number: JP-PFIZER INC-2016326972

PATIENT
  Age: 78 Year
  Sex: Female

DRUGS (4)
  1. ONETRAM [Suspect]
     Active Substance: TRAMADOL HYDROCHLORIDE
     Indication: ANALGESIC THERAPY
     Dosage: 100 MG, 1X/DAY
     Route: 048
     Dates: start: 20160329, end: 20160602
  2. GOSHAJINKIGAN [Suspect]
     Active Substance: HERBALS
     Dosage: 3 DF, 3X/DAY
     Route: 048
     Dates: start: 20160329
  3. LYRICA [Suspect]
     Active Substance: PREGABALIN
     Indication: ANALGESIC THERAPY
     Dosage: 100 MG, 1X/DAY
     Route: 048
     Dates: start: 20160329, end: 20160602
  4. NEUROTROPIN [Suspect]
     Active Substance: NEUROTROPIN
     Dosage: 2 DF, 2X/DAY
     Route: 048
     Dates: start: 20160329

REACTIONS (3)
  - Decreased appetite [Recovering/Resolving]
  - Vomiting [Recovering/Resolving]
  - Nausea [Recovering/Resolving]

NARRATIVE: CASE EVENT DATE: 20160602
